FAERS Safety Report 4943942-0 (Version None)
Quarter: 2006Q1

REPORT INFORMATION
  Report Type: 
  Country: None (occurrence: None)
  Receive Date: 20060313
  Receipt Date: 20060313
  Transmission Date: 20060701
  Serious: Yes (Hospitalization)
  Sender: FDA-Public Use
  Company Number: None

PATIENT
  Age: 50 Year
  Sex: Female
  Weight: 81.6475 kg

DRUGS (3)
  1. TEQUIN [Suspect]
     Indication: BRONCHITIS
     Dosage: 1  DAILY  PO
     Route: 048
     Dates: start: 20060109, end: 20060119
  2. ADVAIR DISKUS 100/50 [Concomitant]
  3. PREDNISONE [Concomitant]

REACTIONS (16)
  - AGITATION [None]
  - ARTHRALGIA [None]
  - BURNING SENSATION [None]
  - DIZZINESS [None]
  - FEELING ABNORMAL [None]
  - FROSTBITE [None]
  - GLOSSITIS [None]
  - HYPOAESTHESIA [None]
  - MUSCLE SPASMS [None]
  - NERVOUSNESS [None]
  - PAIN [None]
  - PAIN IN JAW [None]
  - PERIPHERAL COLDNESS [None]
  - TENDON DISORDER [None]
  - TREMOR [None]
  - VISION BLURRED [None]
